FAERS Safety Report 8574490-7 (Version None)
Quarter: 2012Q3

REPORT INFORMATION
  Report Type: 
  Country: None (occurrence: None)
  Receive Date: 20120806
  Receipt Date: 20111018
  Transmission Date: 20120928
  Serious: No
  Sender: FDA-Public Use
  Company Number: US-ABBOTT-11P-163-0866522-00

PATIENT
  Sex: Male

DRUGS (5)
  1. LAMICTAL [Concomitant]
     Indication: EPILEPSY
     Dosage: TAKES 150MG BID AND 200MG AT BEDTIME
  2. DEPAKOTE ER [Suspect]
     Indication: EPILEPSY
     Dates: start: 20100101
  3. DILANTIN [Concomitant]
     Indication: EPILEPSY
     Dosage: TAKES 100MG+50MG BID
  4. DILANTIN [Concomitant]
  5. LAMICTAL [Concomitant]

REACTIONS (6)
  - PRODUCT PACKAGING ISSUE [None]
  - DRUG INEFFECTIVE [None]
  - COUNTERFEIT DRUG ADMINISTERED [None]
  - PRODUCT LOT NUMBER ISSUE [None]
  - DRUG LEVEL DECREASED [None]
  - PRODUCT COUNTERFEIT [None]
